FAERS Safety Report 10042002 (Version 2)
Quarter: 2014Q1

REPORT INFORMATION
  Report Type: Report from Study
  Country: FR (occurrence: FR)
  Receive Date: 20140327
  Receipt Date: 20140327
  Transmission Date: 20141002
  Serious: Yes (Hospitalization, Other)
  Sender: FDA-Public Use
  Company Number: FR-BRISTOL-MYERS SQUIBB COMPANY-19593441

PATIENT
  Age: 48 Year
  Sex: Female
  Weight: 66.5 kg

DRUGS (6)
  1. REYATAZ [Suspect]
     Indication: HIV INFECTION
     Dosage: PRODUCT FORM: CAPSULE
  2. NORVIR [Suspect]
     Indication: HIV INFECTION
     Dosage: PRODUCT FORM: TABLET
  3. TRUVADA [Suspect]
     Indication: HIV INFECTION
     Dosage: PRODUCT FORM: TABLET
  4. BACTRIM [Concomitant]
     Dosage: 1 DF=1 VIAL
     Dates: start: 20120228
  5. ZECLAR [Concomitant]
     Dosage: 1 DF=1 TABLET
     Dates: start: 20120509
  6. ANSATIPINE [Concomitant]
     Indication: OPPORTUNISTIC INFECTION PROPHYLAXIS
     Dosage: CAPS

REACTIONS (2)
  - Cytomegalovirus infection [Recovering/Resolving]
  - General physical health deterioration [Unknown]
